FAERS Safety Report 20570537 (Version 1)
Quarter: 2022Q1

REPORT INFORMATION
  Report Type: Report from Study
  Country: US (occurrence: US)
  Receive Date: 20220309
  Receipt Date: 20220309
  Transmission Date: 20220423
  Serious: Yes (Other)
  Sender: FDA-Public Use
  Company Number: US-UCBSA-2022012202

PATIENT
  Sex: Male

DRUGS (1)
  1. LACOSAMIDE [Suspect]
     Active Substance: LACOSAMIDE
     Indication: Seizure
     Dosage: 100MG MORNING AND HALF TAB OF 100MG AT NIGHT

REACTIONS (2)
  - Macular degeneration [Not Recovered/Not Resolved]
  - Wrong technique in product usage process [Unknown]
